FAERS Safety Report 5486129-8 (Version None)
Quarter: 2007Q4

REPORT INFORMATION
  Report Type: 
  Country: None (occurrence: None)
  Receive Date: 20071015
  Receipt Date: 20071003
  Transmission Date: 20080405
  Serious: Yes (Other)
  Sender: FDA-Public Use
  Company Number: US-PFIZER INC-2007072473

PATIENT
  Sex: Female
  Weight: 61.7 kg

DRUGS (13)
  1. LYRICA [Suspect]
     Indication: FIBROMYALGIA
  2. LYRICA [Suspect]
     Indication: PAIN
  3. LYRICA [Suspect]
     Indication: MUSCLE SPASMS
  4. BACLOFEN [Suspect]
     Indication: PAIN
  5. BACLOFEN [Suspect]
     Indication: MUSCLE SPASMS
  6. CYMBALTA [Concomitant]
     Indication: INSOMNIA
  7. LIDODERM [Concomitant]
     Route: 061
  8. PERCOCET [Concomitant]
  9. NEXIUM [Concomitant]
     Indication: GASTROOESOPHAGEAL REFLUX DISEASE
  10. VALIUM [Concomitant]
     Indication: ANXIETY
  11. ESTRADIOL [Concomitant]
     Indication: MENOPAUSAL SYMPTOMS
  12. OXYCODONE HCL [Concomitant]
  13. DICLOFENAC SODIUM [Concomitant]

REACTIONS (3)
  - DRUG INEFFECTIVE [None]
  - PAIN [None]
  - ROAD TRAFFIC ACCIDENT [None]
